FAERS Safety Report 5077101-0 (Version None)
Quarter: 2006Q3

REPORT INFORMATION
  Report Type: 
  Country: None (occurrence: None)
  Receive Date: 20060810
  Receipt Date: 20051212
  Transmission Date: 20061208
  Serious: No
  Sender: FDA-Public Use
  Company Number: US-GLAXOSMITHKLINE-A0585519A

PATIENT
  Sex: Male

DRUGS (5)
  1. PAROXETINE HCL [Suspect]
     Indication: DEPRESSION
     Dosage: 40MG PER DAY
     Route: 048
  2. DOXEPIN [Concomitant]
  3. SERAX [Concomitant]
  4. VYTORIN [Concomitant]
  5. DONNATAL [Concomitant]

REACTIONS (1)
  - DRUG INEFFECTIVE [None]
